FAERS Safety Report 5734359-X (Version None)
Quarter: 2008Q2

REPORT INFORMATION
  Report Type: 
  Country: None (occurrence: None)
  Receive Date: 20080507
  Receipt Date: 20080501
  Transmission Date: 20081010
  Serious: Yes (Death, Hospitalization)
  Sender: FDA-Public Use
  Company Number: 163-21880-08050045

PATIENT
  Age: 80 Year
  Sex: Female

DRUGS (14)
  1. REVLIMID [Suspect]
     Indication: MULTIPLE MYELOMA
     Dosage: 20 MG, 2 IN 1 D, ORAL
     Route: 048
     Dates: start: 20071204, end: 20080301
  2. ZOMETA [Concomitant]
  3. PROCRIT [Concomitant]
  4. ARANESP [Concomitant]
  5. MORPHINE SULFATE [Concomitant]
  6. METOPROLOL TARTRATE [Concomitant]
  7. XALATAN [Concomitant]
  8. COSOPT (COSOPT) [Concomitant]
  9. ALPHAGAN [Concomitant]
  10. TRIAMTERENE (TRIAMTERENE) [Concomitant]
  11. LEVOTHYROXINE SODIUM [Concomitant]
  12. MORPHINE SULFATE [Concomitant]
  13. NAPROXEN [Concomitant]
  14. BENADRYL [Concomitant]

REACTIONS (1)
  - PULMONARY EMBOLISM [None]
